FAERS Safety Report 13230701 (Version 2)
Quarter: 2017Q2

REPORT INFORMATION
  Report Type: Report from Study
  Country: US (occurrence: US)
  Receive Date: 20170214
  Receipt Date: 20170417
  Transmission Date: 20170830
  Serious: Yes (Hospitalization, Other)
  Sender: FDA-Public Use
  Company Number: US-GILEAD-2017-0258013

PATIENT
  Age: 69 Year
  Sex: Male

DRUGS (7)
  1. HUMALOG [Concomitant]
     Active Substance: INSULIN LISPRO
  2. ADCIRCA [Concomitant]
     Active Substance: TADALAFIL
  3. LASIX [Concomitant]
     Active Substance: FUROSEMIDE
  4. CARVEDILOL. [Concomitant]
     Active Substance: CARVEDILOL
  5. VYTORIN [Concomitant]
     Active Substance: EZETIMIBE\SIMVASTATIN
  6. AMBRISENTAN [Suspect]
     Active Substance: AMBRISENTAN
     Indication: PULMONARY HYPERTENSION
     Dosage: 10 MG, QD
     Route: 065
  7. WARFARIN [Concomitant]
     Active Substance: WARFARIN

REACTIONS (7)
  - Cardiac failure congestive [Not Recovered/Not Resolved]
  - Diarrhoea [Not Recovered/Not Resolved]
  - Loss of consciousness [Not Recovered/Not Resolved]
  - Hypotension [Not Recovered/Not Resolved]
  - Blood glucose increased [Not Recovered/Not Resolved]
  - Dehydration [Not Recovered/Not Resolved]
  - Diabetes mellitus [Not Recovered/Not Resolved]
